FAERS Safety Report 7903079-5 (Version None)
Quarter: 2011Q4

REPORT INFORMATION
  Report Type: 
  Country: None (occurrence: None)
  Receive Date: 20111107
  Receipt Date: 20111024
  Transmission Date: 20120403
  Serious: Yes (Life-Threatening, Hospitalization, Other)
  Sender: FDA-Public Use
  Company Number: FK201101961

PATIENT
  Age: 80 Year
  Sex: Male

DRUGS (5)
  1. ROPIVACAINE HYDROCHLORIDE [Suspect]
     Indication: ANALGESIC THERAPY
     Dosage: 400 ?G, EPIDURAL
     Route: 008
     Dates: start: 20110629
  2. ADRENALIN IN OIL INJ [Suspect]
     Indication: ANALGESIC THERAPY
     Dosage: 400 ?G, EPIDURAL
     Route: 008
     Dates: start: 20110629
  3. SAXAGLIPTIN (SAXAGLIPTIN)(SAXAGLIPTIN) [Suspect]
     Indication: TYPE 2 DIABETES MELLITUS
     Dates: start: 20110217, end: 20110629
  4. FENTANYL [Suspect]
     Indication: ANALGESIC THERAPY
     Dosage: 400 ?G, EPIDURAL
     Route: 008
     Dates: start: 20110629
  5. PLACEBO (PLACEBO) ( PLACEBO) [Suspect]
     Indication: TYPE 2 DIABETES MELLITUS

REACTIONS (9)
  - POST PROCEDURAL HAEMORRHAGE [None]
  - SICK SINUS SYNDROME [None]
  - RHYTHM IDIOVENTRICULAR [None]
  - ANAEMIA [None]
  - THROMBOCYTOPENIA [None]
  - MEDICAL DEVICE COMPLICATION [None]
  - SINUS ARREST [None]
  - HYPOTENSION [None]
  - POST PROCEDURAL COMPLICATION [None]
